FAERS Safety Report 17069917 (Version 3)
Quarter: 2020Q1

REPORT INFORMATION
  Report Type: Spontaneous
  Country: US (occurrence: US)
  Receive Date: 20191125
  Receipt Date: 20200117
  Transmission Date: 20200409
  Serious: Yes (Other)
  Sender: FDA-Public Use
  Company Number: US-HORIZON-KRY-1049-2019

PATIENT
  Age: 67 Year
  Sex: Female

DRUGS (1)
  1. KRYSTEXXA [Suspect]
     Active Substance: PEGLOTICASE
     Indication: GOUT
     Dosage: 8MG EVERY 2 WEEKS
     Dates: start: 20190913, end: 20191023

REACTIONS (2)
  - Lung neoplasm malignant [Not Recovered/Not Resolved]
  - Inappropriate schedule of product administration [Unknown]
